FAERS Safety Report 14265452 (Version 1)
Quarter: 2017Q4

REPORT INFORMATION
  Report Type: Report from Study
  Country: US (occurrence: US)
  Receive Date: 20171208
  Receipt Date: 20171208
  Transmission Date: 20180321
  Serious: Yes (Death)
  Sender: FDA-Public Use
  Company Number: US-PFIZER INC-2017524343

PATIENT

DRUGS (6)
  1. CISPLATIN. [Suspect]
     Active Substance: CISPLATIN
     Indication: NON-SMALL CELL LUNG CANCER
     Dosage: 50 MG/M2, CYCLIC (OVER 60 MINUTES ON DAYS 1 AND 8)
     Route: 042
  2. DEXAMETHASONE. [Concomitant]
     Active Substance: DEXAMETHASONE
     Indication: ANTIEMETIC SUPPORTIVE CARE
     Dosage: UNK, (MINIMUM, GIVEN PRIOR TO CISPLATIN)
  3. VINORELBINE TARTRATE. [Suspect]
     Active Substance: VINORELBINE TARTRATE
     Indication: NON-SMALL CELL LUNG CANCER
     Dosage: 25 MG/M2, CYCLIC (ON DAYS 1 AND 8)
     Route: 040
  4. MANNITOL. [Concomitant]
     Active Substance: MANNITOL
     Dosage: 12.5 G, UNK, (I.V. PUSH WAS GIVEN BEFORE AND AFTER CISPLATIN)
     Route: 042
  5. SALINE [Concomitant]
     Active Substance: SODIUM CHLORIDE
     Indication: PROPHYLAXIS AGAINST DEHYDRATION
     Dosage: UNK, (1-2 LITERS, INTRAVENOUS HYDRATION WAS CONTINUED FOR A MINIMUM OF 2 HOURS AFTER CISPLATIN)
     Route: 042
  6. GEMCITABINE HYDROCHLORIDE. [Suspect]
     Active Substance: GEMCITABINE HYDROCHLORIDE
     Indication: NON-SMALL CELL LUNG CANCER
     Dosage: 1000 MG/M2, CYCLIC (OVER 30 MINUTES ON DAYS 1 AND 8)
     Route: 042

REACTIONS (1)
  - Neutropenic infection [Fatal]
